FAERS Safety Report 21246073 (Version 2)
Quarter: 2022Q4

REPORT INFORMATION
  Report Type: Report from Study
  Country: JP (occurrence: JP)
  Receive Date: 20220824
  Receipt Date: 20221013
  Transmission Date: 20230112
  Serious: Yes (Hospitalization, Other)
  Sender: FDA-Public Use
  Company Number: JP-CHUGAI-2022025607

PATIENT
  Age: 75 Year
  Sex: Female

DRUGS (3)
  1. ATEZOLIZUMAB [Suspect]
     Active Substance: ATEZOLIZUMAB
     Indication: Non-small cell lung cancer
     Route: 041
  2. CARBOPLATIN [Concomitant]
     Active Substance: CARBOPLATIN
     Indication: Non-small cell lung cancer
     Route: 041
  3. PEMETREXED [Concomitant]
     Active Substance: PEMETREXED
     Indication: Non-small cell lung cancer
     Route: 041

REACTIONS (6)
  - Diarrhoea [Recovering/Resolving]
  - Ascites [Unknown]
  - Enterocolitis [Unknown]
  - Incarcerated inguinal hernia [Recovering/Resolving]
  - Peritonitis [Recovering/Resolving]
  - Gastrointestinal perforation [Unknown]

NARRATIVE: CASE EVENT DATE: 20220627
